FAERS Safety Report 5459896-7 (Version None)
Quarter: 2007Q3

REPORT INFORMATION
  Report Type: 
  Country: None (occurrence: None)
  Receive Date: 20070919
  Receipt Date: 20070907
  Transmission Date: 20080115
  Serious: Yes (Life-Threatening, Hospitalization)
  Sender: FDA-Public Use
  Company Number: GB-ROCHE-399894

PATIENT
  Age: 67 Year
  Sex: Female

DRUGS (8)
  1. BUMETANIDE [Suspect]
     Route: 065
  2. BUMETANIDE [Suspect]
     Dosage: REINTRODUCED BEFORE DISCHARGE FROM HOSPITAL.
     Route: 065
  3. ISOSORBIDE MONONITRATE [Suspect]
     Route: 065
  4. ISOSORBIDE MONONITRATE [Suspect]
     Dosage: REINTRODUCED BEFORE DISCHARGE FROM HOSPITAL.
     Route: 065
  5. ENALAPRIL MALEATE [Suspect]
     Route: 065
  6. ENALAPRIL MALEATE [Suspect]
     Dosage: REINTRODUCED BEFORE DISCHARGE FROM HOSPITAL.
     Route: 065
  7. BISOPROLOL [Suspect]
     Route: 065
  8. BISOPROLOL [Suspect]
     Dosage: REINTRODUCED BEFORE DISCHARGE FROM HOSPITAL.
     Route: 065

REACTIONS (7)
  - BLOOD PRESSURE SYSTOLIC DECREASED [None]
  - BRADYCARDIA [None]
  - DIARRHOEA [None]
  - HYPERKALAEMIA [None]
  - RENAL FAILURE ACUTE [None]
  - SHOCK [None]
  - UNRESPONSIVE TO STIMULI [None]
